FAERS Safety Report 4918002-5 (Version None)
Quarter: 2006Q1

REPORT INFORMATION
  Report Type: 
  Country: None (occurrence: None)
  Receive Date: 20060221
  Receipt Date: 20051031
  Transmission Date: 20060701
  Serious: Yes (Hospitalization, Disabling)
  Sender: FDA-Public Use
  Company Number: US-MERCK-0511USA00257

PATIENT
  Age: 59 Year
  Sex: Female
  Weight: 55 kg

DRUGS (8)
  1. VIOXX [Suspect]
     Indication: RHEUMATOID ARTHRITIS
     Route: 048
     Dates: start: 20011206, end: 20040727
  2. ASPIRIN [Concomitant]
     Route: 048
     Dates: start: 19940101
  3. AMITRIPTYLINE HYDROCHLORIDE [Concomitant]
     Indication: PAIN
     Route: 065
  4. ACETAMINOPHEN AND HYDROCODONE BITARTRATE [Concomitant]
     Indication: PAIN
     Route: 065
  5. OXYBUTYNIN [Concomitant]
     Route: 065
  6. ACETAMINOPHEN AND PROPOXYPHENE HYDROCHLORIDE [Concomitant]
     Indication: PAIN
     Route: 065
  7. EVISTA [Concomitant]
     Route: 065
  8. ALBUTEROL [Concomitant]
     Route: 065

REACTIONS (20)
  - ANXIETY [None]
  - ASTHMA [None]
  - BACTERIAL INFECTION [None]
  - CEREBROVASCULAR ACCIDENT [None]
  - CHOLELITHIASIS [None]
  - COUGH [None]
  - DEPRESSION [None]
  - FLUID RETENTION [None]
  - HAND DEFORMITY [None]
  - HORMONE LEVEL ABNORMAL [None]
  - HYPERSENSITIVITY [None]
  - HYPERTENSION [None]
  - HYPERTONIC BLADDER [None]
  - INFECTION [None]
  - IRON DEFICIENCY [None]
  - NASOPHARYNGITIS [None]
  - OSTEOPOROSIS [None]
  - RENAL DISORDER [None]
  - RHEUMATOID ARTHRITIS [None]
  - SKIN DISORDER [None]
